FAERS Safety Report 5202984-0 (Version None)
Quarter: 2006Q4

REPORT INFORMATION
  Report Type: 
  Country: None (occurrence: None)
  Receive Date: 20061016
  Receipt Date: 20060815
  Transmission Date: 20070319
  Serious: No
  Sender: FDA-Public Use
  Company Number: 2006SP003025

PATIENT
  Age: 26 Year
  Sex: Female
  Weight: 72.5755 kg

DRUGS (2)
  1. LUNESTA [Suspect]
     Indication: INSOMNIA
     Dosage: 2 MG; 1X; ORAL
     Route: 048
     Dates: start: 20060814, end: 20060814
  2. ZOLOFT [Concomitant]

REACTIONS (3)
  - DYSGEUSIA [None]
  - HYPOAESTHESIA [None]
  - PARAESTHESIA ORAL [None]
